FAERS Safety Report 21735924 (Version 17)
Quarter: 2023Q1

REPORT INFORMATION
  Report Type: Report from Study
  Country: TR (occurrence: None)
  Receive Date: 20221215
  Receipt Date: 20230322
  Transmission Date: 20230417
  Serious: Yes (Hospitalization)
  Sender: FDA-Public Use
  Company Number: TR-Eisai Medical Research-EC-2022-129985

PATIENT
  Age: 55 Year
  Sex: Male
  Weight: 69 kg

DRUGS (12)
  1. LENVATINIB [Suspect]
     Active Substance: LENVATINIB
     Indication: Clear cell renal cell carcinoma
     Route: 048
     Dates: start: 20220802, end: 20221003
  2. LENVATINIB [Suspect]
     Active Substance: LENVATINIB
     Dosage: STARTING DOSE AT 20 MG, FLUCTUATED DOSAGE
     Route: 048
     Dates: start: 20221004, end: 20221206
  3. QUAVONLIMAB [Suspect]
     Active Substance: QUAVONLIMAB
     Indication: Clear cell renal cell carcinoma
     Dosage: QUAVONLIMAB 25 MG (+) PEMBROLIZUMAB 400 MG
     Route: 042
     Dates: start: 20220802, end: 20220913
  4. PEMBROLIZUMAB [Suspect]
     Active Substance: PEMBROLIZUMAB
     Dosage: QUAVONLIMAB 25 MG (+) PEMBROLIZUMAB 400 MG
     Route: 042
     Dates: start: 20221101
  5. ALLOPURINOL [Concomitant]
     Active Substance: ALLOPURINOL
     Dates: start: 201201
  6. COZAAR [Concomitant]
     Active Substance: LOSARTAN POTASSIUM
     Dates: start: 201201
  7. XARELTO [Concomitant]
     Active Substance: RIVAROXABAN
     Dates: start: 202101
  8. BELOC [Concomitant]
     Dates: start: 202201
  9. SELECTRA [Concomitant]
     Dates: start: 202101, end: 20220922
  10. KEPPRA [Concomitant]
     Active Substance: LEVETIRACETAM
     Dates: start: 202101
  11. EUTHYROX [Concomitant]
     Active Substance: LEVOTHYROXINE SODIUM
     Dates: start: 20220831, end: 20221004
  12. PANTO [PANTOPRAZOLE SODIUM SESQUIHYDRATE] [Concomitant]
     Active Substance: PANTOPRAZOLE SODIUM
     Dates: start: 202101

REACTIONS (1)
  - Sepsis [Recovered/Resolved]

NARRATIVE: CASE EVENT DATE: 20220920
